FAERS Safety Report 8493952-4 (Version None)
Quarter: 2012Q3

REPORT INFORMATION
  Report Type: 
  Country: None (occurrence: None)
  Receive Date: 20120709
  Receipt Date: 20120702
  Transmission Date: 20120928
  Serious: Yes (Hospitalization)
  Sender: FDA-Public Use
  Company Number: US-AMGEN-USASP2012040806

PATIENT
  Age: 49 Year
  Sex: Male

DRUGS (1)
  1. ENBREL [Suspect]
     Indication: ANKYLOSING SPONDYLITIS
     Dosage: 50 MG, QWK
     Dates: start: 20120406, end: 20120609

REACTIONS (8)
  - NAUSEA [None]
  - HYPERTENSION [None]
  - ABDOMINAL DISCOMFORT [None]
  - OESOPHAGEAL POLYP [None]
  - FATIGUE [None]
  - CHEST PAIN [None]
  - BLISTER [None]
  - GASTRIC POLYPS [None]
